FAERS Safety Report 15433241 (Version 3)
Quarter: 2022Q3

REPORT INFORMATION
  Report Type: Spontaneous
  Country: JP (occurrence: JP)
  Receive Date: 20180927
  Receipt Date: 20220423
  Transmission Date: 20221027
  Serious: Yes (Death, Hospitalization, Other)
  Sender: FDA-Public Use
  Company Number: JP-002147023-PHJP2018JP016772

PATIENT

DRUGS (2)
  1. RUXOLITINIB [Suspect]
     Active Substance: RUXOLITINIB
     Indication: Myelofibrosis
     Dosage: 40 MG, QD
     Route: 048
  2. RUXOLITINIB [Suspect]
     Active Substance: RUXOLITINIB
     Dosage: 20 MG
     Route: 048

REACTIONS (11)
  - Ascites [Not Recovered/Not Resolved]
  - Myelofibrosis [Unknown]
  - Malignant neoplasm progression [Unknown]
  - General physical health deterioration [Fatal]
  - Peritonitis [Recovered/Resolved]
  - Oesophageal varices haemorrhage [Recovered/Resolved]
  - Portal hypertension [Unknown]
  - Concomitant disease aggravated [Unknown]
  - Varicose vein ruptured [Recovered/Resolved]
  - Splenomegaly [Not Recovered/Not Resolved]
  - Umbilical hernia perforation [Recovered/Resolved]
